FAERS Safety Report 17405290 (Version 1)
Quarter: 2020Q1

REPORT INFORMATION
  Report Type: Spontaneous
  Country: GB (occurrence: GB)
  Receive Date: 20200212
  Receipt Date: 20200212
  Transmission Date: 20200409
  Serious: Yes (Other)
  Sender: FDA-Public Use
  Company Number: GB-TEVA-2020-GB-1183695

PATIENT
  Age: 40 Year

DRUGS (5)
  1. SODIUM VALPROATE [Concomitant]
     Active Substance: VALPROATE SODIUM
     Dosage: 200MG MORNING, 400MG NIGHT
     Route: 048
  2. OMEPRAZOLE. [Concomitant]
     Active Substance: OMEPRAZOLE
     Dosage: 20MG
     Route: 048
  3. RIGEVIDON [Concomitant]
  4. HALOPERIDOL. [Suspect]
     Active Substance: HALOPERIDOL
     Dosage: 10MG
  5. RISPERIDONE. [Suspect]
     Active Substance: RISPERIDONE
     Dosage: 1MG MORNING, 2MG NIGHT
     Route: 048

REACTIONS (1)
  - Hyperprolactinaemia [Unknown]
